FAERS Safety Report 5363349-4 (Version None)
Quarter: 2007Q2

REPORT INFORMATION
  Report Type: 
  Country: None (occurrence: None)
  Receive Date: 20070615
  Receipt Date: 20070604
  Transmission Date: 20071010
  Serious: Yes (Death, Other)
  Sender: FDA-Public Use
  Company Number: 100#08#2007-02028

PATIENT
  Age: 44 Year
  Sex: Female

DRUGS (2)
  1. METRONIDAZOLE [Suspect]
     Indication: LUNG INFECTION
  2. PIPERACILLIN [Suspect]
     Indication: LUNG INFECTION

REACTIONS (3)
  - ACINETOBACTER INFECTION [None]
  - SEPSIS [None]
  - TOXIC EPIDERMAL NECROLYSIS [None]
